FAERS Safety Report 11714336 (Version 2)
Quarter: 2016Q1

REPORT INFORMATION
  Report Type: Report from Study
  Country: US (occurrence: US)
  Receive Date: 20151109
  Receipt Date: 20160104
  Transmission Date: 20160525
  Serious: Yes (Hospitalization, Other)
  Sender: FDA-Public Use
  Company Number: US-BAYER-2014-137784

PATIENT
  Age: 37 Year
  Sex: Female
  Weight: 65.76 kg

DRUGS (10)
  1. ADEMPAS [Suspect]
     Active Substance: RIOCIGUAT
     Indication: PULMONARY ARTERIAL HYPERTENSION
     Dosage: UNK
     Dates: start: 20140701
  2. ADEMPAS [Suspect]
     Active Substance: RIOCIGUAT
     Indication: PULMONARY ARTERIAL HYPERTENSION
     Dosage: 1 MG, TID (SHIPPED 19-FEB-2015)
     Route: 048
  3. WARFARIN [Concomitant]
     Active Substance: WARFARIN
  4. ADEMPAS [Suspect]
     Active Substance: RIOCIGUAT
     Indication: PULMONARY ARTERIAL HYPERTENSION
     Dosage: 1.5 MG, BID
     Route: 048
  5. MIDODRINE [Concomitant]
     Active Substance: MIDODRINE
  6. ADEMPAS [Suspect]
     Active Substance: RIOCIGUAT
     Indication: PULMONARY ARTERIAL HYPERTENSION
     Dosage: 1 MG, TID (SHIPPED 01-JUN-2015)
     Route: 048
  7. REMODULIN [Suspect]
     Active Substance: TREPROSTINIL
  8. ADEMPAS [Suspect]
     Active Substance: RIOCIGUAT
     Indication: PULMONARY ARTERIAL HYPERTENSION
     Dosage: 1.5 MG, TID
     Route: 048
  9. LETAIRIS [Concomitant]
     Active Substance: AMBRISENTAN
  10. COUMADIN [Concomitant]
     Active Substance: WARFARIN SODIUM

REACTIONS (20)
  - Syncope [Unknown]
  - Pulmonary arterial hypertension [Unknown]
  - Abdominal distension [Unknown]
  - Abdominal discomfort [Unknown]
  - Inappropriate schedule of drug administration [None]
  - Nausea [None]
  - Contusion [None]
  - Pain in extremity [Unknown]
  - Arthralgia [Unknown]
  - Loss of consciousness [None]
  - Injection site pain [None]
  - Syncope [Unknown]
  - Scratch [None]
  - Syncope [Recovered/Resolved]
  - Limb injury [Unknown]
  - Dizziness [None]
  - Dyspnoea [Unknown]
  - Pulmonary arterial hypertension [None]
  - Adverse drug reaction [None]
  - Fall [Unknown]

NARRATIVE: CASE EVENT DATE: 20150826
